FAERS Safety Report 10416778 (Version 2)
Quarter: 2016Q1

REPORT INFORMATION
  Report Type: Spontaneous
  Country: IE (occurrence: IE)
  Receive Date: 20140828
  Receipt Date: 20160309
  Transmission Date: 20160525
  Serious: Yes (Other)
  Sender: FDA-Public Use
  Company Number: IE-BRISTOL-MYERS SQUIBB COMPANY-21331343

PATIENT
  Age: 26 Year
  Sex: Male

DRUGS (3)
  1. VEPESID [Suspect]
     Active Substance: ETOPOSIDE
     Indication: SEMINOMA
     Route: 065
  2. BLEOMYCIN SULFATE [Suspect]
     Active Substance: BLEOMYCIN SULFATE
     Indication: SEMINOMA
     Route: 065
  3. BRIPLATIN [Suspect]
     Active Substance: CISPLATIN
     Indication: SEMINOMA
     Route: 065

REACTIONS (2)
  - Cerebral infarction [Unknown]
  - Product use issue [Unknown]
